FAERS Safety Report 7529954-1 (Version None)
Quarter: 2011Q2

REPORT INFORMATION
  Report Type: 
  Country: None (occurrence: None)
  Receive Date: 20110607
  Receipt Date: 20110606
  Transmission Date: 20111010
  Serious: Yes (Hospitalization)
  Sender: FDA-Public Use
  Company Number: GB-AMGEN-GBRSP2010001134

PATIENT
  Age: 83 Year
  Sex: Female
  Weight: 59.5 kg

DRUGS (6)
  1. RAMIPRIL [Concomitant]
     Dosage: 10 MG, QD
     Route: 048
  2. IRBESARTAN [Concomitant]
     Dosage: 300 MG, QD
     Route: 048
  3. SIMVASTATIN [Concomitant]
     Dosage: UNK UNK, QD
     Route: 048
  4. DARBEPOETIN ALFA [Suspect]
     Dosage: 10 A?G, QMO
     Route: 058
     Dates: start: 20091021, end: 20100115
  5. VERAPAMIL [Concomitant]
     Dosage: 240 MG, QD
     Route: 048
  6. FUROSEMIDE [Concomitant]
     Dosage: 40 MG, QD

REACTIONS (2)
  - MIGRAINE [None]
  - HYPERTENSION [None]
